FAERS Safety Report 13670821 (Version 1)
Quarter: 2017Q2

REPORT INFORMATION
  Report Type: Spontaneous
  Country: US (occurrence: US)
  Receive Date: 20170620
  Receipt Date: 20170620
  Transmission Date: 20170830
  Serious: No
  Sender: FDA-Public Use
  Company Number: US-ROCHE-1161716

PATIENT
  Sex: Male

DRUGS (1)
  1. XELODA [Suspect]
     Active Substance: CAPECITABINE
     Indication: OESOPHAGEAL CARCINOMA
     Dosage: SEVEN DAYS ON AND SEVEN DAYS OFF
     Route: 065
     Dates: start: 20121126

REACTIONS (6)
  - Abdominal pain upper [Recovering/Resolving]
  - Poor quality drug administered [Unknown]
  - Feeling abnormal [Recovering/Resolving]
  - Fatigue [Recovering/Resolving]
  - Motor dysfunction [Recovering/Resolving]
  - Nausea [Recovering/Resolving]
